FAERS Safety Report 6056966-X (Version None)
Quarter: 2009Q1

REPORT INFORMATION
  Report Type: 
  Country: None (occurrence: None)
  Receive Date: 20090129
  Receipt Date: 20090119
  Transmission Date: 20090719
  Serious: Yes (Death, Life-Threatening, Hospitalization)
  Sender: FDA-Public Use
  Company Number: JP-AMGEN-US285034

PATIENT
  Sex: Female

DRUGS (8)
  1. ENBREL [Suspect]
     Indication: RHEUMATOID ARTHRITIS
     Route: 058
     Dates: start: 20060711, end: 20080502
  2. VOLTAREN [Concomitant]
     Route: 054
     Dates: start: 20060711, end: 20080507
  3. MUCOSTA [Concomitant]
     Indication: GASTRIC ULCER
     Route: 048
     Dates: start: 20060718, end: 20080507
  4. SODIUM CITRATE [Concomitant]
     Indication: HYPERURICAEMIA
     Route: 048
     Dates: start: 20060618, end: 20080507
  5. ZYLORIC [Concomitant]
     Indication: HYPERURICAEMIA
     Route: 048
     Dates: start: 20060718, end: 20080507
  6. SLOW-FE [Concomitant]
     Indication: ANAEMIA
     Route: 048
     Dates: start: 20071026, end: 20080507
  7. ALFAROL [Concomitant]
     Indication: OSTEOPOROSIS
     Route: 048
     Dates: start: 20060718, end: 20080507
  8. POTASSIUM CITRATE [Concomitant]
     Indication: HYPERURICAEMIA
     Route: 048
     Dates: start: 20060718, end: 20080507

REACTIONS (14)
  - ABDOMINAL PAIN [None]
  - ACUTE RESPIRATORY DISTRESS SYNDROME [None]
  - ANAEMIA [None]
  - CONDITION AGGRAVATED [None]
  - DEPRESSED LEVEL OF CONSCIOUSNESS [None]
  - GASTROINTESTINAL FISTULA [None]
  - INFECTION [None]
  - JAUNDICE CHOLESTATIC [None]
  - MALNUTRITION [None]
  - PANCREATIC CARCINOMA [None]
  - PYREXIA [None]
  - RENAL DISORDER [None]
  - RHEUMATOID ARTHRITIS [None]
  - SHOCK [None]
